FAERS Safety Report 4738796-1 (Version None)
Quarter: 2005Q3

REPORT INFORMATION
  Report Type: 
  Country: None (occurrence: None)
  Receive Date: 20050804
  Receipt Date: 20050725
  Transmission Date: 20060218
  Serious: Yes (Other)
  Sender: FDA-Public Use
  Company Number: 2005107248

PATIENT
  Age: 64 Year
  Sex: Female
  Weight: 65 kg

DRUGS (5)
  1. ESTRADIOL [Suspect]
     Indication: URINARY TRACT DISORDER
     Dosage: VAGINAL
     Route: 067
     Dates: start: 20050425, end: 20050501
  2. ATORVASTATIN CALCIUM [Concomitant]
  3. LANSOPRAZOLE [Concomitant]
  4. ATENOLOL [Concomitant]
  5. CO-PROXAMOL (DEXTROPROPOXYPHENE HYDROCHLORIDE, PARACETAMOL) [Concomitant]

REACTIONS (3)
  - CHEST DISCOMFORT [None]
  - HYPERSENSITIVITY [None]
  - WHEEZING [None]
